FAERS Safety Report 10469062 (Version 2)
Quarter: 2014Q4

REPORT INFORMATION
  Report Type: Report from Study
  Country: US (occurrence: US)
  Receive Date: 20140923
  Receipt Date: 20141106
  Transmission Date: 20150528
  Serious: Yes (Hospitalization)
  Sender: FDA-Public Use
  Company Number: US-BRISTOL-MYERS SQUIBB COMPANY-21394812

PATIENT
  Age: 14 Year
  Sex: Male
  Weight: 61.22 kg

DRUGS (10)
  1. DASATINIB [Suspect]
     Active Substance: DASATINIB
     Route: 048
     Dates: start: 20140328, end: 20140829
  2. NELARABINE [Suspect]
     Active Substance: NELARABINE
     Dates: start: 20140902, end: 20140906
  3. HYDROCORTISONE. [Suspect]
     Active Substance: HYDROCORTISONE
  4. OXYCODONE [Concomitant]
     Active Substance: OXYCODONE
  5. CYTARABINE. [Suspect]
     Active Substance: CYTARABINE
  6. DEXAMETHASONE. [Suspect]
     Active Substance: DEXAMETHASONE
  7. PONATINIB HYDROCHLORIDE [Suspect]
     Active Substance: PONATINIB
  8. ETOPOSIDE. [Suspect]
     Active Substance: ETOPOSIDE
  9. L-ASPARAGINASE [Suspect]
     Active Substance: ASPARAGINASE
  10. METHOTREXATE [Suspect]
     Active Substance: METHOTREXATE

REACTIONS (2)
  - Rhabdomyolysis [Recovered/Resolved]
  - Acute kidney injury [Recovered/Resolved]

NARRATIVE: CASE EVENT DATE: 20140908
